FAERS Safety Report 5398341-7 (Version None)
Quarter: 2007Q3

REPORT INFORMATION
  Report Type: 
  Country: None (occurrence: None)
  Receive Date: 20070724
  Receipt Date: 20070709
  Transmission Date: 20080115
  Serious: Yes (Hospitalization)
  Sender: FDA-Public Use
  Company Number: 2007S1006236

PATIENT
  Age: 57 Year
  Sex: Female

DRUGS (1)
  1. BENAZEPRIL HCL [Suspect]
     Indication: HYPERTENSION
     Dosage: 20 MG;DAILY;ORAL
     Route: 048
     Dates: start: 20070201

REACTIONS (5)
  - ALVEOLITIS ALLERGIC [None]
  - COLLAPSE OF LUNG [None]
  - DYSPNOEA [None]
  - LUNG INFILTRATION [None]
  - PHARMACEUTICAL PRODUCT COMPLAINT [None]
